FAERS Safety Report 8600348 (Version 4)
Quarter: 2014Q1

REPORT INFORMATION
  Report Type: Spontaneous
  Country: US (occurrence: US)
  Receive Date: 20120606
  Receipt Date: 20140122
  Transmission Date: 20141002
  Serious: Yes (Hospitalization)
  Sender: FDA-Public Use
  Company Number: US-ASTRAZENECA-2012SE35581

PATIENT
  Age: 66 Year
  Sex: Female

DRUGS (19)
  1. NEXIUM [Suspect]
     Indication: DYSPEPSIA
     Dosage: TWICE DAILY
     Route: 048
     Dates: start: 2002, end: 2011
  2. AMITRIPTYLINE [Concomitant]
     Indication: DEPRESSION
  3. ALLOPURINOL [Concomitant]
     Indication: GOUT
  4. LORATANINE [Concomitant]
     Indication: HYPERSENSITIVITY
  5. LOPERAM [Concomitant]
     Indication: DIARRHOEA
  6. LOPERAM [Concomitant]
     Indication: DIARRHOEA
     Dates: start: 201002
  7. ASACOL [Concomitant]
     Indication: COLITIS
  8. CLONIDINE [Concomitant]
     Indication: BLOOD PRESSURE ABNORMAL
  9. ATENOLOL [Concomitant]
     Indication: HYPERTENSION
     Dates: start: 200912
  10. AMLODIPINE [Concomitant]
     Indication: HYPERTENSION
     Dates: start: 200908
  11. SIMVASTATIN [Concomitant]
     Indication: BLOOD CHOLESTEROL ABNORMAL
     Dates: start: 200910
  12. GLIMEPIRIDE [Concomitant]
     Indication: DIABETES MELLITUS
  13. METFORMIN [Concomitant]
     Indication: DIABETES MELLITUS
     Dates: start: 20091023
  14. FUROSEMIDE [Concomitant]
     Dates: start: 20090826
  15. ACTOS [Concomitant]
     Dates: start: 200910
  16. HYDROCODONE APAP [Concomitant]
     Dates: start: 200910
  17. ENTOCORT EC [Concomitant]
     Dates: start: 201012
  18. COLCHICINE [Concomitant]
     Dates: start: 20100112
  19. SPIRONOLACTONE [Concomitant]
     Dates: start: 20111215

REACTIONS (4)
  - Back pain [Unknown]
  - Pain in extremity [Unknown]
  - Osteoporosis [Unknown]
  - Multiple fractures [Unknown]
